FAERS Safety Report 9541703 (Version 1)
Quarter: 2013Q3

REPORT INFORMATION
  Report Type: Spontaneous
  Country: US (occurrence: US)
  Receive Date: 20130923
  Receipt Date: 20130923
  Transmission Date: 20140515
  Serious: No
  Sender: FDA-Public Use
  Company Number: US-BAYER-2013-114241

PATIENT
  Age: 40 Year
  Sex: Female

DRUGS (2)
  1. MAGNEVIST [Suspect]
     Indication: SCAN BRAIN
     Dosage: 17 ML, ONCE
     Dates: start: 20130918, end: 20130918
  2. MAGNEVIST [Suspect]
     Indication: MULTIPLE SCLEROSIS

REACTIONS (4)
  - Nasal discomfort [None]
  - Rash [Not Recovered/Not Resolved]
  - Local swelling [Recovered/Resolved]
  - Lip swelling [Recovered/Resolved]
